FAERS Safety Report 9461119 (Version 1)
Quarter: 2013Q3

REPORT INFORMATION
  Report Type: Spontaneous
  Country: US (occurrence: US)
  Receive Date: 20130816
  Receipt Date: 20130816
  Transmission Date: 20140515
  Serious: No
  Sender: FDA-Public Use
  Company Number: US-BIOGENIDEC-2013BI073049

PATIENT
  Age: 36 Year
  Sex: Female

DRUGS (1)
  1. AVONEX [Suspect]
     Indication: MULTIPLE SCLEROSIS
     Route: 030
     Dates: start: 20130711

REACTIONS (9)
  - Aphasia [Recovered/Resolved]
  - Migraine [Recovered/Resolved]
  - Feeling cold [Recovered/Resolved]
  - Burning sensation [Recovered/Resolved]
  - Painful respiration [Recovered/Resolved]
  - Chills [Recovered/Resolved]
  - Confusional state [Not Recovered/Not Resolved]
  - Pyrexia [Recovered/Resolved]
  - Headache [Recovered/Resolved]
